FAERS Safety Report 21867655 (Version 2)
Quarter: 2023Q1

REPORT INFORMATION
  Report Type: Report from Study
  Country: US (occurrence: US)
  Receive Date: 20230116
  Receipt Date: 20230201
  Transmission Date: 20230417
  Serious: No
  Sender: FDA-Public Use
  Company Number: US-ABBVIE-4271579

PATIENT
  Sex: Male

DRUGS (1)
  1. VENCLEXTA [Suspect]
     Active Substance: VENETOCLAX
     Indication: Chronic lymphocytic leukaemia
     Route: 048
     Dates: start: 20221128

REACTIONS (5)
  - Flatulence [Unknown]
  - Irritability [Unknown]
  - Paraesthesia [Unknown]
  - Abdominal discomfort [Unknown]
  - Diarrhoea [Unknown]
